FAERS Safety Report 8827728 (Version 2)
Quarter: 2012Q4

REPORT INFORMATION
  Report Type: Report from Study
  Country: CN (occurrence: CN)
  Receive Date: 20121005
  Receipt Date: 20121017
  Transmission Date: 20130627
  Serious: Yes (Hospitalization)
  Sender: FDA-Public Use
  Company Number: PHHO2012CN013948

PATIENT
  Age: 78 Year
  Sex: Female
  Weight: 48 kg

DRUGS (6)
  1. EXELON [Suspect]
     Indication: DEMENTIA ALZHEIMER^S TYPE
     Dosage: UNK
     Route: 048
     Dates: start: 20120718, end: 20120814
  2. EXELON [Suspect]
     Dosage: UNK
     Route: 048
     Dates: start: 20120814, end: 20120911
  3. EXELON [Suspect]
     Dosage: UNK
     Route: 048
     Dates: start: 20120911, end: 20120925
  4. PLACEBO [Suspect]
     Dosage: UNK
     Dates: start: 20120718, end: 20120814
  5. PLACEBO [Suspect]
     Dosage: UNK
     Dates: start: 20120814, end: 20120911
  6. PLACEBO [Suspect]
     Dosage: UNK
     Dates: start: 20120911, end: 20120925

REACTIONS (1)
  - Anorexia nervosa [Recovering/Resolving]
